FAERS Safety Report 24088378 (Version 2)
Quarter: 2024Q3

REPORT INFORMATION
  Report Type: Spontaneous
  Country: US (occurrence: US)
  Receive Date: 20240715
  Receipt Date: 20240820
  Transmission Date: 20241016
  Serious: Yes (Hospitalization)
  Sender: CIPLA
  Company Number: US-CIPLA LTD.-2024US07239

PATIENT

DRUGS (1)
  1. ACYCLOVIR [Suspect]
     Active Substance: ACYCLOVIR
     Indication: Epstein-Barr virus antibody
     Dosage: 400 MILLIGRAM, TID (THREE TIMES DAILY FOR FIVE DAYS)
     Route: 048

REACTIONS (1)
  - Product administration error [Unknown]
